FAERS Safety Report 13239546 (Version 1)
Quarter: 2017Q1

REPORT INFORMATION
  Report Type: Spontaneous
  Country: US (occurrence: US)
  Receive Date: 20170216
  Receipt Date: 20170216
  Transmission Date: 20170428
  Serious: Yes (Other)
  Sender: FDA-Public Use
  Company Number: US-AMGEN-USASP2017022272

PATIENT
  Age: 74 Year
  Sex: Female

DRUGS (1)
  1. PROLIA [Suspect]
     Active Substance: DENOSUMAB
     Indication: OSTEOPENIA
     Dosage: 60 MG, UNK
     Route: 065

REACTIONS (4)
  - Bone loss [Not Recovered/Not Resolved]
  - Periodontal disease [Recovered/Resolved]
  - Exposed bone in jaw [Unknown]
  - Off label use [Unknown]
